FAERS Safety Report 7037009-8 (Version None)
Quarter: 2010Q4

REPORT INFORMATION
  Report Type: 
  Country: None (occurrence: None)
  Receive Date: 20101011
  Receipt Date: 20100928
  Transmission Date: 20110411
  Serious: Yes (Death, Other)
  Sender: FDA-Public Use
  Company Number: NZ-ELI_LILLY_AND_COMPANY-NZ201009007349

PATIENT
  Age: 32 Year
  Sex: Male

DRUGS (3)
  1. ZYPREXA [Suspect]
     Indication: BIPOLAR DISORDER
     Dosage: 15 MG, EACH EVENING
     Dates: start: 20091201, end: 20100715
  2. LITHIUM [Concomitant]
  3. IMOVANE [Concomitant]

REACTIONS (4)
  - ANTIPSYCHOTIC DRUG LEVEL [None]
  - DRUG DOSE OMISSION [None]
  - DRUG INTERACTION [None]
  - RESPIRATORY DEPRESSION [None]
